FAERS Safety Report 6705062-4 (Version None)
Quarter: 2010Q2

REPORT INFORMATION
  Report Type: 
  Country: None (occurrence: None)
  Receive Date: 20100430
  Receipt Date: 20100422
  Transmission Date: 20101027
  Serious: Yes (Hospitalization)
  Sender: FDA-Public Use
  Company Number: B0650534A

PATIENT
  Age: 32 Year
  Sex: Male

DRUGS (6)
  1. AUGMENTIN '125' [Suspect]
     Indication: MULTIPLE DRUG OVERDOSE INTENTIONAL
     Dosage: 14TAB PER DAY
     Route: 048
     Dates: start: 20090525, end: 20090525
  2. IBUPROFEN [Suspect]
     Indication: MULTIPLE DRUG OVERDOSE INTENTIONAL
     Dosage: 7TAB PER DAY
     Route: 048
     Dates: start: 20090525, end: 20090525
  3. NAPROXEN [Suspect]
     Indication: MULTIPLE DRUG OVERDOSE INTENTIONAL
     Dosage: 6TAB PER DAY
     Route: 048
     Dates: start: 20090525, end: 20090525
  4. NOLOTIL [Suspect]
     Indication: MULTIPLE DRUG OVERDOSE INTENTIONAL
     Dosage: 10CAP PER DAY
     Route: 048
     Dates: start: 20090525, end: 20090525
  5. DICLOFENAC [Suspect]
     Indication: MULTIPLE DRUG OVERDOSE INTENTIONAL
     Dosage: 20TAB PER DAY
     Route: 048
     Dates: start: 20090525, end: 20090525
  6. ACETYLSALICYLIC ACID [Suspect]
     Indication: MULTIPLE DRUG OVERDOSE INTENTIONAL
     Dosage: 20TAB PER DAY
     Route: 048
     Dates: start: 20090525, end: 20090525

REACTIONS (3)
  - DRUG INTERACTION [None]
  - MULTIPLE DRUG OVERDOSE INTENTIONAL [None]
  - RENAL FAILURE ACUTE [None]
